FAERS Safety Report 5674749-7 (Version None)
Quarter: 2008Q1

REPORT INFORMATION
  Report Type: 
  Country: None (occurrence: None)
  Receive Date: 20080320
  Receipt Date: 20080313
  Transmission Date: 20080703
  Serious: Yes (Hospitalization, Other)
  Sender: FDA-Public Use
  Company Number: US-ROCHE-545504

PATIENT
  Age: 55 Year
  Sex: Male

DRUGS (2)
  1. PEG-INTERFERON A-2A (RO 25-8310) [Suspect]
     Indication: HEPATITIS C VIRUS
     Dosage: PREFILLED SYRINGE
     Route: 065
     Dates: start: 20071211
  2. RIBAVIRIN [Suspect]
     Indication: HEPATITIS C VIRUS
     Route: 065
     Dates: start: 20071211

REACTIONS (3)
  - CELLULITIS [None]
  - DEPRESSION [None]
  - LYMPHOEDEMA [None]
